FAERS Safety Report 8998354 (Version 3)
Quarter: 2014Q1

REPORT INFORMATION
  Report Type: Spontaneous
  Country: US (occurrence: US)
  Receive Date: 20130102
  Receipt Date: 20140314
  Transmission Date: 20141002
  Serious: No
  Sender: FDA-Public Use
  Company Number: US-ASTRAZENECA-2010SE35430

PATIENT
  Age: 54 Year
  Sex: Female
  Weight: 77.1 kg

DRUGS (13)
  1. NEXIUM [Suspect]
     Indication: GASTROOESOPHAGEAL REFLUX DISEASE
     Route: 048
     Dates: start: 1999
  2. PRILOSEC [Suspect]
     Route: 048
  3. PRILOSEC OTC [Suspect]
     Route: 048
  4. ZANAFLEX [Concomitant]
     Indication: NECK SURGERY
  5. LIPITOR [Concomitant]
  6. XANAX [Concomitant]
     Indication: ANXIETY
  7. TYLENOL [Concomitant]
  8. ZERTEC [Concomitant]
  9. ULTRACEF [Concomitant]
  10. ZORAFLEX [Concomitant]
  11. FEMHRT [Concomitant]
     Indication: BLOOD OESTROGEN ABNORMAL
  12. LORATAB [Concomitant]
  13. ULTRACET [Concomitant]

REACTIONS (22)
  - Type 2 diabetes mellitus [Unknown]
  - Abdominal distension [Unknown]
  - Aphagia [Unknown]
  - Sensation of foreign body [Unknown]
  - Hearing impaired [Unknown]
  - Memory impairment [Unknown]
  - Weight decreased [Unknown]
  - Decreased appetite [Unknown]
  - Angiopathy [Unknown]
  - Nervous system disorder [Unknown]
  - Pain [Unknown]
  - Weight increased [Unknown]
  - Dyspepsia [Unknown]
  - Nausea [Unknown]
  - Vomiting [Unknown]
  - Malaise [Unknown]
  - Poor quality sleep [Unknown]
  - Dry mouth [Unknown]
  - Dizziness [Unknown]
  - Confusional state [Unknown]
  - Drug dose omission [Unknown]
  - Drug ineffective [Unknown]
